FAERS Safety Report 11050441 (Version 1)
Quarter: 2015Q2

REPORT INFORMATION
  Report Type: Spontaneous
  Country: US (occurrence: None)
  Receive Date: 20150420
  Receipt Date: 20150420
  Transmission Date: 20150821
  Serious: No
  Sender: FDA-Public Use
  Company Number: None

PATIENT

DRUGS (2)
  1. MYCOPHENOLATE [Suspect]
     Active Substance: MYCOPHENOLIC ACID
  2. CARVEDILOL CARVEDILOL [Suspect]
     Active Substance: CARVEDILOL

REACTIONS (2)
  - Drug dispensing error [None]
  - Drug dose omission [None]
